FAERS Safety Report 12226724 (Version 5)
Quarter: 2016Q2

REPORT INFORMATION
  Report Type: Report from Study
  Country: US (occurrence: US)
  Receive Date: 20160331
  Receipt Date: 20160504
  Transmission Date: 20160815
  Serious: Yes (Other)
  Sender: FDA-Public Use
  Company Number: US-PURDUE-USA-2016-0129952

PATIENT
  Sex: Female

DRUGS (5)
  1. OXYCONTIN [Suspect]
     Active Substance: OXYCODONE HYDROCHLORIDE
     Indication: INTERVERTEBRAL DISC DEGENERATION
     Dosage: 40 MG, Q6H
     Route: 048
     Dates: start: 2002
  2. OXYCONTIN [Suspect]
     Active Substance: OXYCODONE HYDROCHLORIDE
     Indication: SPINAL DISORDER
     Dosage: 40 MG, Q6H
     Route: 048
     Dates: start: 201604
  3. OXYCONTIN [Suspect]
     Active Substance: OXYCODONE HYDROCHLORIDE
     Indication: PAIN
     Dosage: 40 MG, Q8H
     Route: 048
  4. OXYCONTIN [Suspect]
     Active Substance: OXYCODONE HYDROCHLORIDE
     Dosage: 80 MG, BID
     Route: 048
  5. OXYCODONE HCL CR TABLETS (SIMILAR TO NDA 22-272) [Concomitant]
     Active Substance: OXYCODONE HYDROCHLORIDE
     Indication: BREAKTHROUGH PAIN
     Dosage: 15 MG, PRN
     Route: 048

REACTIONS (17)
  - Dental caries [Unknown]
  - Nausea [Recovered/Resolved]
  - Off label use [Not Recovered/Not Resolved]
  - Tooth discolouration [Unknown]
  - Dizziness [Recovered/Resolved]
  - Somnolence [Unknown]
  - Tooth loss [Unknown]
  - Depression [Unknown]
  - Feeling abnormal [Unknown]
  - Road traffic accident [Unknown]
  - Tooth disorder [Unknown]
  - Inadequate analgesia [Unknown]
  - Tooth injury [Unknown]
  - Dysgeusia [Unknown]
  - Constipation [Not Recovered/Not Resolved]
  - Pain [Unknown]
  - Mental impairment [Unknown]

NARRATIVE: CASE EVENT DATE: 2002
